FAERS Safety Report 8166667-X (Version None)
Quarter: 2012Q1

REPORT INFORMATION
  Report Type: 
  Country: None (occurrence: None)
  Receive Date: 20120227
  Receipt Date: 20120216
  Transmission Date: 20120608
  Serious: Yes (Other)
  Sender: FDA-Public Use
  Company Number: JP-CELGENEUS-087-21880-11093675

PATIENT
  Sex: Male

DRUGS (16)
  1. NATEGLINIDE [Concomitant]
     Indication: DIABETES MELLITUS
     Dosage: 90 MILLIGRAM
     Route: 048
     Dates: start: 20100909, end: 20100929
  2. ZOMETA [Concomitant]
     Dosage: 4 MILLIGRAM
     Route: 041
     Dates: start: 20110113, end: 20110202
  3. REVLIMID [Suspect]
     Dosage: 25 MILLIGRAM
     Route: 048
     Dates: start: 20110113, end: 20110202
  4. DEXAMETHASONE ACETATE [Suspect]
     Dosage: 20 MILLIGRAM
     Route: 048
     Dates: start: 20110113, end: 20110203
  5. COTRIM [Concomitant]
     Indication: PROPHYLAXIS
     Dosage: 4 TABLET
     Route: 048
     Dates: start: 20100909, end: 20100929
  6. REVLIMID [Suspect]
     Indication: MULTIPLE MYELOMA
     Dosage: 25 MILLIGRAM
     Route: 048
     Dates: start: 20100909, end: 20100929
  7. DEXAMETHASONE ACETATE [Suspect]
     Indication: MULTIPLE MYELOMA
     Dosage: 40 MILLIGRAM
     Route: 048
     Dates: start: 20100909, end: 20100930
  8. BASEN [Concomitant]
     Dosage: .9 MILLIGRAM
     Route: 048
     Dates: start: 20110113, end: 20110202
  9. ZOMETA [Concomitant]
     Indication: PROPHYLAXIS
     Dosage: 4 MILLIGRAM
     Route: 041
     Dates: start: 20060621, end: 20100929
  10. FAMOTIDINE [Concomitant]
     Indication: PROPHYLAXIS
     Dosage: 40 MILLIGRAM
     Route: 048
     Dates: start: 20100909, end: 20100929
  11. FAMOTIDINE [Concomitant]
     Dosage: 40 MILLIGRAM
     Route: 048
     Dates: start: 20110113, end: 20110202
  12. ARMODAFINIL [Concomitant]
     Indication: PROPHYLAXIS
     Dosage: 200 MILLIGRAM
     Route: 048
     Dates: start: 20100909, end: 20100929
  13. ARMODAFINIL [Concomitant]
     Dosage: 200 MILLIGRAM
     Route: 048
     Dates: start: 20110113, end: 20110202
  14. NATEGLINIDE [Concomitant]
     Dosage: 90 MILLIGRAM
     Route: 048
     Dates: start: 20110113, end: 20110202
  15. COTRIM [Concomitant]
     Dosage: 4 TABLET
     Route: 048
     Dates: start: 20110113, end: 20110202
  16. BASEN [Concomitant]
     Indication: DIABETES MELLITUS
     Dosage: .9 MILLIGRAM
     Route: 048
     Dates: start: 20100909, end: 20100929

REACTIONS (4)
  - DYSPHONIA [None]
  - CONSTIPATION [None]
  - HICCUPS [None]
  - LUNG NEOPLASM MALIGNANT [None]
